FAERS Safety Report 8077144-9 (Version None)
Quarter: 2012Q1

REPORT INFORMATION
  Report Type: 
  Country: None (occurrence: None)
  Receive Date: 20120127
  Receipt Date: 20120123
  Transmission Date: 20120608
  Serious: Yes (Life-Threatening, Hospitalization, Other)
  Sender: FDA-Public Use
  Company Number: PHEH2011US010756

PATIENT
  Age: 51 Year
  Sex: Male

DRUGS (3)
  1. RECLAST [Suspect]
     Indication: BONE DENSITY DECREASED
     Dosage: UNK
     Route: 042
     Dates: start: 20110915
  2. MESALAMINE [Concomitant]
  3. RECLAST [Suspect]
     Indication: OSTEOPOROSIS
     Dates: start: 20110919

REACTIONS (22)
  - CHEST PAIN [None]
  - HYPERHIDROSIS [None]
  - PYREXIA [None]
  - RASH [None]
  - DYSPNOEA [None]
  - PULMONARY FUNCTION TEST DECREASED [None]
  - LIMB DEFORMITY [None]
  - VOMITING [None]
  - TREMOR [None]
  - PAIN [None]
  - HYPOAESTHESIA [None]
  - BURNING SENSATION [None]
  - CHILLS [None]
  - INSOMNIA [None]
  - FEELING ABNORMAL [None]
  - LIMB DISCOMFORT [None]
  - MUSCLE SPASMS [None]
  - ARTHROPATHY [None]
  - SKIN DISCOLOURATION [None]
  - MYOCARDIAL INFARCTION [None]
  - MALAISE [None]
  - MOBILITY DECREASED [None]
